FAERS Safety Report 18243655 (Version 1)
Quarter: 2020Q3

REPORT INFORMATION
  Report Type: Spontaneous
  Country: IN (occurrence: IN)
  Receive Date: 20200908
  Receipt Date: 20200908
  Transmission Date: 20201103
  Serious: Yes (Hospitalization)
  Sender: FDA-Public Use
  Company Number: IN-AMNEAL PHARMACEUTICALS-2020-AMRX-02686

PATIENT
  Age: 32 Year
  Sex: Female

DRUGS (4)
  1. HYDROXYCHLOROQUINE SULFATE. [Suspect]
     Active Substance: HYDROXYCHLOROQUINE SULFATE
     Indication: PROPHYLAXIS
     Dosage: 1ST DOSE 800 MG ON FIRST DAY
     Route: 065
  2. HYDROXYCHLOROQUINE SULFATE. [Suspect]
     Active Substance: HYDROXYCHLOROQUINE SULFATE
     Dosage: 2ND DOSE 400 MG AFTER 1 WEEK AND SAME DOSE IN 3RD WEEK
     Route: 065
  3. PYRIDOSTIGMINE [Concomitant]
     Active Substance: PYRIDOSTIGMINE
     Dosage: 180 MILLIGRAM, 1X/DAY
     Route: 065
  4. PYRIDOSTIGMINE [Concomitant]
     Active Substance: PYRIDOSTIGMINE
     Indication: MYASTHENIA GRAVIS
     Dosage: UNK (SOS)
     Route: 065

REACTIONS (1)
  - Myasthenia gravis [Recovering/Resolving]
